FAERS Safety Report 17486738 (Version 1)
Quarter: 2020Q1

REPORT INFORMATION
  Report Type: Spontaneous
  Country: US (occurrence: US)
  Receive Date: 20200303
  Receipt Date: 20200303
  Transmission Date: 20200409
  Serious: No
  Sender: FDA-Public Use
  Company Number: US-GILEAD-2020-0453255

PATIENT
  Age: 38 Year
  Sex: Male

DRUGS (2)
  1. TRUVADA [Suspect]
     Active Substance: EMTRICITABINE\TENOFOVIR DISOPROXIL FUMARATE
     Indication: EXPOSURE TO COMMUNICABLE DISEASE
     Dosage: UNK
     Route: 065
     Dates: start: 20191218, end: 20200117
  2. ISENTRESS [Concomitant]
     Active Substance: RALTEGRAVIR POTASSIUM

REACTIONS (3)
  - Headache [Recovering/Resolving]
  - Off label use [Recovered/Resolved]
  - Herpes virus infection [Unknown]

NARRATIVE: CASE EVENT DATE: 201912
